FAERS Safety Report 13779874 (Version 8)
Quarter: 2018Q3

REPORT INFORMATION
  Report Type: Report from Study
  Country: US (occurrence: US)
  Receive Date: 20170723
  Receipt Date: 20180928
  Transmission Date: 20181010
  Serious: Yes (Other)
  Sender: FDA-Public Use
  Company Number: PHEH2017US022198

PATIENT
  Sex: Female

DRUGS (1)
  1. KISQALI [Suspect]
     Active Substance: RIBOCICLIB
     Indication: PRODUCT USED FOR UNKNOWN INDICATION
     Dosage: QD
     Route: 048
     Dates: start: 20170701

REACTIONS (8)
  - Leukopenia [Recovered/Resolved]
  - Alopecia [Unknown]
  - Nausea [Unknown]
  - Bone pain [Unknown]
  - Pain [Unknown]
  - Gastrointestinal disorder [Unknown]
  - Headache [Unknown]
  - Fatigue [Unknown]
